FAERS Safety Report 6521123-7 (Version None)
Quarter: 2009Q4

REPORT INFORMATION
  Report Type: 
  Country: None (occurrence: None)
  Receive Date: 20091222
  Receipt Date: 20091215
  Transmission Date: 20100525
  Serious: Yes (Hospitalization)
  Sender: FDA-Public Use
  Company Number: 2009AL007803

PATIENT
  Age: 86 Year
  Sex: Male

DRUGS (1)
  1. ORPHENADRINE CITRATE [Suspect]
     Indication: MUSCLE STRAIN

REACTIONS (5)
  - CLAVICLE FRACTURE [None]
  - COMPRESSION FRACTURE [None]
  - DELIRIUM [None]
  - FALL [None]
  - HALLUCINATION [None]
